FAERS Safety Report 17191731 (Version 1)
Quarter: 2019Q4

REPORT INFORMATION
  Report Type: Spontaneous
  Country: SE (occurrence: SE)
  Receive Date: 20191223
  Receipt Date: 20191223
  Transmission Date: 20200122
  Serious: Yes (Hospitalization)
  Sender: FDA-Public Use
  Company Number: SE-PFIZER INC-2019547731

PATIENT
  Age: 30 Year
  Sex: Female

DRUGS (3)
  1. XANOR [Suspect]
     Active Substance: ALPRAZOLAM
     Dosage: UNK
     Route: 048
     Dates: start: 20180212, end: 20180212
  2. THERALEN [Suspect]
     Active Substance: TRIMEPRAZINE
     Dosage: UNK
     Route: 048
     Dates: start: 20180212, end: 20180212
  3. PROPAVAN [Suspect]
     Active Substance: PROPIOMAZINE
     Dosage: 1250 MG, UNK
     Route: 048
     Dates: start: 20180212, end: 20180212

REACTIONS (5)
  - Tachycardia [Unknown]
  - Intentional self-injury [Unknown]
  - Akathisia [Unknown]
  - Muscle spasticity [Unknown]
  - Intentional overdose [Unknown]

NARRATIVE: CASE EVENT DATE: 20180212
